FAERS Safety Report 8518450-0 (Version None)
Quarter: 2012Q3

REPORT INFORMATION
  Report Type: 
  Country: None (occurrence: None)
  Receive Date: 20120718
  Receipt Date: 20120313
  Transmission Date: 20120928
  Serious: No
  Sender: FDA-Public Use
  Company Number: US-BRISTOL-MYERS SQUIBB COMPANY-16450926

PATIENT
  Sex: Female

DRUGS (1)
  1. COUMADIN [Suspect]
     Dosage: DOSNG SCHEDULE:4 PILLS 5 DAYS A WEEK AND 2 DAYS 2 MG

REACTIONS (2)
  - CONTUSION [None]
  - DRUG DOSE OMISSION [None]
